FAERS Safety Report 4955581-6 (Version None)
Quarter: 2006Q1

REPORT INFORMATION
  Report Type: 
  Country: None (occurrence: None)
  Receive Date: 20060328
  Receipt Date: 20051102
  Transmission Date: 20060701
  Serious: Yes (Hospitalization, Other)
  Sender: FDA-Public Use
  Company Number: US-MERCK-0511USA00630

PATIENT
  Age: 58 Year
  Sex: Male
  Weight: 111 kg

DRUGS (21)
  1. VIOXX [Suspect]
     Indication: ARTHRITIS
     Route: 048
     Dates: start: 20000526
  2. VIOXX [Suspect]
     Indication: BURSITIS
     Route: 048
     Dates: start: 20000526
  3. VICODIN [Concomitant]
     Route: 065
  4. WYTENSIN [Concomitant]
     Route: 065
  5. ASPIRIN [Concomitant]
     Indication: PROPHYLAXIS
     Route: 065
  6. VITAMIN E [Concomitant]
     Route: 065
  7. ASCORBIC ACID [Concomitant]
     Route: 065
  8. CELEXA [Concomitant]
     Indication: DEPRESSION
     Route: 065
  9. CLONIDINE [Concomitant]
     Indication: HYPERTENSION
     Route: 065
  10. ISOSORBIDE [Concomitant]
     Indication: CHEST PAIN
     Route: 065
  11. ISOSORBIDE [Concomitant]
     Indication: ANGINA PECTORIS
     Route: 065
  12. LIPITOR [Concomitant]
     Indication: BLOOD CHOLESTEROL INCREASED
     Route: 065
  13. LIPITOR [Concomitant]
     Indication: BLOOD TRIGLYCERIDES INCREASED
     Route: 065
  14. LASIX [Concomitant]
     Indication: OEDEMA
     Route: 065
  15. LASIX [Concomitant]
     Indication: CARDIAC FAILURE CONGESTIVE
     Route: 065
  16. PINDOLOL [Concomitant]
     Indication: HYPERTENSION
     Route: 065
  17. PLETAL [Concomitant]
     Indication: ARTERIOSCLEROSIS
     Route: 065
  18. PREVACID [Concomitant]
     Indication: GASTROOESOPHAGEAL REFLUX DISEASE
     Route: 065
  19. SOMA [Concomitant]
     Indication: INSOMNIA
     Route: 065
  20. ULTRAM [Concomitant]
     Indication: PAIN
     Route: 065
  21. CEFTIN [Concomitant]
     Route: 065

REACTIONS (12)
  - ADVERSE EVENT [None]
  - CARDIAC FAILURE CONGESTIVE [None]
  - CARDIOVASCULAR DISORDER [None]
  - CAROTID ARTERY DISEASE [None]
  - CEREBROVASCULAR ACCIDENT [None]
  - DIABETES MELLITUS [None]
  - GASTRIC DISORDER [None]
  - GASTROINTESTINAL DISORDER [None]
  - LEG AMPUTATION [None]
  - MYOCARDIAL INFARCTION [None]
  - PERFORATED ULCER [None]
  - RENAL FAILURE [None]
